FAERS Safety Report 8550860-8 (Version None)
Quarter: 2012Q3

REPORT INFORMATION
  Report Type: 
  Country: None (occurrence: None)
  Receive Date: 20120730
  Receipt Date: 20110616
  Transmission Date: 20120928
  Serious: No
  Sender: FDA-Public Use
  Company Number: US-GLAXOSMITHKLINE-A0932995A

PATIENT
  Sex: Male

DRUGS (1)
  1. ZANTAC [Suspect]
     Indication: GASTROOESOPHAGEAL REFLUX DISEASE
     Dosage: 150MG UNKNOWN
     Route: 065

REACTIONS (4)
  - INSOMNIA [None]
  - DYSGEUSIA [None]
  - DRUG INEFFECTIVE [None]
  - DYSPEPSIA [None]
